FAERS Safety Report 19628873 (Version 1)
Quarter: 2021Q3

REPORT INFORMATION
  Report Type: Spontaneous
  Country: US (occurrence: US)
  Receive Date: 20210728
  Receipt Date: 20210728
  Transmission Date: 20211014
  Serious: No
  Sender: FDA-Public Use
  Company Number: US-KYOWAKIRIN-2021BKK012935

PATIENT

DRUGS (1)
  1. POTELIGEO [Suspect]
     Active Substance: MOGAMULIZUMAB-KPKC
     Indication: CUTANEOUS T-CELL LYMPHOMA
     Dosage: 60 MG, ONCE EVERY OTHER WEEK
     Route: 042
     Dates: start: 20190705

REACTIONS (2)
  - Myalgia [Unknown]
  - Pain in extremity [Unknown]
